FAERS Safety Report 6395547-5 (Version None)
Quarter: 2009Q4

REPORT INFORMATION
  Report Type: 
  Country: None (occurrence: None)
  Receive Date: 20091009
  Receipt Date: 20090929
  Transmission Date: 20100525
  Serious: Yes (Other)
  Sender: FDA-Public Use
  Company Number: US-PFIZER INC-2009263502

PATIENT
  Sex: Female
  Weight: 108.84 kg

DRUGS (5)
  1. CELEBREX [Suspect]
     Indication: OSTEOARTHRITIS
     Dosage: 200 MG, 1X/DAY
     Dates: start: 20090801, end: 20090830
  2. CELEBREX [Suspect]
     Indication: TENDONITIS
  3. CELEBREX [Suspect]
     Indication: FIBROMYALGIA
  4. PROTONIX [Concomitant]
  5. SOMA [Concomitant]
     Dosage: UNK

REACTIONS (8)
  - ANXIETY [None]
  - ASTHMA [None]
  - DIZZINESS [None]
  - DYSPHAGIA [None]
  - FLUSHING [None]
  - HEADACHE [None]
  - PRURITUS [None]
  - THROAT TIGHTNESS [None]
